FAERS Safety Report 4467854-4 (Version None)
Quarter: 2004Q4

REPORT INFORMATION
  Report Type: 
  Country: None (occurrence: None)
  Receive Date: 20041005
  Receipt Date: 20040922
  Transmission Date: 20050328
  Serious: Yes (Other)
  Sender: FDA-Public Use
  Company Number: 2004068917

PATIENT
  Age: 40 Year
  Sex: Male
  Weight: 81.6475 kg

DRUGS (1)
  1. SUDAFED SINUS HEADACHE CAPLETS (PARACETAMOL, PSEUDOEPHEDRINE) [Suspect]
     Indication: SINUS HEADACHE
     Dosage: 2 CAPLETS FOR A FEW DAYS, THEN 3  CAPLETS, ORAL
     Route: 048
     Dates: end: 20040918

REACTIONS (8)
  - ARRHYTHMIA [None]
  - BLOOD POTASSIUM DECREASED [None]
  - DEHYDRATION [None]
  - HEART RATE INCREASED [None]
  - MEDICATION ERROR [None]
  - PAIN [None]
  - POLLAKIURIA [None]
  - SLUGGISHNESS [None]
